FAERS Safety Report 6630819-8 (Version None)
Quarter: 2010Q1

REPORT INFORMATION
  Report Type: 
  Country: None (occurrence: None)
  Receive Date: 20100311
  Receipt Date: 20100301
  Transmission Date: 20100710
  Serious: Yes (Hospitalization)
  Sender: FDA-Public Use
  Company Number: DE-ABBOTT-10P-062-0629496-00

PATIENT
  Age: 56 Year
  Sex: Male

DRUGS (16)
  1. VALPROIC ACID [Suspect]
     Indication: BIPOLAR DISORDER
     Route: 048
     Dates: start: 20091027, end: 20091028
  2. VALPROIC ACID [Interacting]
     Route: 048
     Dates: start: 20091029, end: 20091029
  3. VALPROIC ACID [Interacting]
     Route: 048
     Dates: start: 20091118
  4. SEROQUEL [Interacting]
     Indication: AGITATION
     Dosage: EXTENDED RELEASE
     Route: 048
     Dates: start: 20090925, end: 20090928
  5. SEROQUEL [Interacting]
     Dosage: EXTENDED RELEASE
     Route: 048
     Dates: start: 20090929, end: 20091005
  6. SEROQUEL [Interacting]
     Dosage: EXTENDED RELEASE
     Route: 048
     Dates: start: 20091006, end: 20091013
  7. SEROQUEL [Interacting]
     Dosage: EXTENDED RELEASE
     Route: 048
     Dates: start: 20091014, end: 20091022
  8. SEROQUEL [Interacting]
     Dosage: EXTENDED RELEASE
     Route: 048
     Dates: start: 20091023, end: 20091023
  9. SEROQUEL [Interacting]
     Dosage: EXTENDED RELEASE
     Route: 048
     Dates: start: 20091024, end: 20091027
  10. SEROQUEL [Interacting]
     Dosage: EXTENDED RELEASE
     Route: 048
     Dates: start: 20091028, end: 20091104
  11. SEROQUEL [Interacting]
     Dosage: EXTENDED RELEASE
     Route: 048
     Dates: start: 20091105
  12. TAXILAN [Suspect]
     Indication: DRUG USE FOR UNKNOWN INDICATION
     Route: 048
     Dates: start: 20091023
  13. ACETYLSALICYLIC ACID [Concomitant]
     Indication: DRUG USE FOR UNKNOWN INDICATION
  14. PLAVIX [Concomitant]
     Indication: DRUG USE FOR UNKNOWN INDICATION
  15. CO-DIOVAN [Concomitant]
     Indication: DRUG USE FOR UNKNOWN INDICATION
  16. DELIX [Concomitant]
     Indication: DRUG USE FOR UNKNOWN INDICATION

REACTIONS (7)
  - ALTERED STATE OF CONSCIOUSNESS [None]
  - DRUG INTERACTION [None]
  - DRUG LEVEL BELOW THERAPEUTIC [None]
  - DYSARTHRIA [None]
  - HYPOKINESIA [None]
  - HYPOTONIA [None]
  - SOMNOLENCE [None]
